FAERS Safety Report 14992265 (Version 1)
Quarter: 2018Q2

REPORT INFORMATION
  Report Type: Spontaneous
  Country: DE (occurrence: DE)
  Receive Date: 20180608
  Receipt Date: 20180608
  Transmission Date: 20180711
  Serious: Yes (Hospitalization)
  Sender: FDA-Public Use
  Company Number: DE-TEVA-2018-DE-902610

PATIENT
  Age: 69 Year
  Sex: Male
  Weight: 109 kg

DRUGS (11)
  1. ALLOPURINOL. [Suspect]
     Active Substance: ALLOPURINOL
     Route: 048
  2. TORASEMID [Concomitant]
     Active Substance: TORSEMIDE
     Route: 048
  3. METFORMIN [Concomitant]
     Active Substance: METFORMIN HYDROCHLORIDE
     Route: 048
  4. AMLODIPIN [Concomitant]
     Active Substance: AMLODIPINE BESYLATE
     Route: 048
  5. CLONIDIN [Concomitant]
     Active Substance: CLONIDINE
     Route: 048
  6. BISOPROLOL [Concomitant]
     Active Substance: BISOPROLOL
     Route: 048
  7. SIMVASTATIN. [Concomitant]
     Active Substance: SIMVASTATIN
     Route: 048
  8. ACETYLSALICYLSAEURE [Suspect]
     Active Substance: ASPIRIN
     Route: 048
  9. PHENPROCOUMON [Suspect]
     Active Substance: PHENPROCOUMON
     Route: 048
  10. CLOPIDOGREL [Suspect]
     Active Substance: CLOPIDOGREL BISULFATE
     Route: 048
  11. ENALAPRIL [Concomitant]
     Active Substance: ENALAPRIL
     Route: 048

REACTIONS (1)
  - Respiratory tract haemorrhage [Unknown]

NARRATIVE: CASE EVENT DATE: 20151117
